FAERS Safety Report 8732316 (Version 2)
Quarter: 2013Q1

REPORT INFORMATION
  Report Type: Spontaneous
  Country: US (occurrence: US)
  Receive Date: 20120820
  Receipt Date: 20130124
  Transmission Date: 20140127
  Serious: Yes (Hospitalization, Congenital Anomaly)
  Sender: FDA-Public Use
  Company Number: US-GLAXOSMITHKLINE-A0989970A

PATIENT
  Age: 0 Year
  Sex: Male

DRUGS (1)
  1. PAXIL [Suspect]
     Indication: DEPRESSION
     Dosage: 20MG PER DAY
     Route: 064
     Dates: start: 19990801, end: 20040621

REACTIONS (6)
  - Talipes [Unknown]
  - Congenital hydronephrosis [Unknown]
  - Cardiac murmur [Unknown]
  - Atrial septal defect [Unknown]
  - Ehlers-Danlos syndrome [Unknown]
  - Foetal exposure during pregnancy [Unknown]
